FAERS Safety Report 11712783 (Version 1)
Quarter: 2015Q4

REPORT INFORMATION
  Report Type: Spontaneous
  Country: US (occurrence: US)
  Receive Date: 20151104
  Receipt Date: 20151104
  Transmission Date: 20160304
  Serious: No
  Sender: FDA-Public Use
  Company Number: US-ELI_LILLY_AND_COMPANY-US201106006071

PATIENT
  Sex: Female

DRUGS (10)
  1. ACTONEL [Concomitant]
     Active Substance: RISEDRONATE SODIUM
  2. SYNTHROID [Concomitant]
     Active Substance: LEVOTHYROXINE SODIUM
  3. CRESTOR [Concomitant]
     Active Substance: ROSUVASTATIN CALCIUM
  4. NEXIUM [Concomitant]
     Active Substance: ESOMEPRAZOLE MAGNESIUM
  5. CENTRUM [Concomitant]
     Active Substance: VITAMINS
  6. TUMS [Concomitant]
     Active Substance: CALCIUM CARBONATE
  7. FORTEO [Suspect]
     Active Substance: TERIPARATIDE
     Indication: OSTEOPOROSIS
     Dosage: 20 UG, QD
  8. VITAMIN D [Concomitant]
     Active Substance: CHOLECALCIFEROL
  9. BABY ASPIRIN [Concomitant]
     Active Substance: ASPIRIN
  10. ALEVE [Concomitant]
     Active Substance: NAPROXEN SODIUM

REACTIONS (1)
  - Spinal fracture [Unknown]
